FAERS Safety Report 7465292-3 (Version None)
Quarter: 2011Q2

REPORT INFORMATION
  Report Type: 
  Country: None (occurrence: None)
  Receive Date: 20110509
  Receipt Date: 20110503
  Transmission Date: 20111010
  Serious: Yes (Other)
  Sender: FDA-Public Use
  Company Number: GB-JNJFOC-20101102638

PATIENT
  Sex: Female
  Weight: 81 kg

DRUGS (4)
  1. VERMOX [Suspect]
     Indication: ENTEROBIASIS
     Route: 048
  2. INFLUENZA VACCINE [Concomitant]
     Indication: PRODUCT USED FOR UNKNOWN INDICATION
     Route: 058
  3. AMOXICILLIN [Concomitant]
     Indication: PRODUCT USED FOR UNKNOWN INDICATION
     Route: 048
  4. SCHERIPROCT KOMBI [Concomitant]
     Indication: PRODUCT USED FOR UNKNOWN INDICATION
     Route: 061

REACTIONS (8)
  - DISORIENTATION [None]
  - DRUG EXPOSURE DURING PREGNANCY [None]
  - MYALGIA [None]
  - RESPIRATORY DISORDER [None]
  - FEELING ABNORMAL [None]
  - CONFUSIONAL STATE [None]
  - GRAND MAL CONVULSION [None]
  - PRURITUS [None]
